FAERS Safety Report 5215107-9 (Version None)
Quarter: 2006Q4

REPORT INFORMATION
  Report Type: 
  Country: None (occurrence: None)
  Receive Date: 20061107
  Receipt Date: 20060724
  Transmission Date: 20070319
  Serious: No
  Sender: FDA-Public Use
  Company Number: 200614605BWH

PATIENT
  Age: 67 Year
  Sex: Male

DRUGS (2)
  1. LEVITRA [Suspect]
     Indication: LIBIDO DECREASED
     Dosage: ORAL
     Route: 048
  2. AVODART [Concomitant]

REACTIONS (1)
  - LIBIDO DECREASED [None]
